FAERS Safety Report 11771349 (Version 1)
Quarter: 2015Q4

REPORT INFORMATION
  Report Type: Spontaneous
  Country: NL (occurrence: NL)
  Receive Date: 20151124
  Receipt Date: 20151124
  Transmission Date: 20160304
  Serious: Yes (Death)
  Sender: FDA-Public Use
  Company Number: NL-CIPLA LTD.-2015NL08681

PATIENT

DRUGS (4)
  1. CARBOPLATIN. [Suspect]
     Active Substance: CARBOPLATIN
     Indication: NON-SMALL CELL LUNG CANCER STAGE IV
     Dosage: AREA UNDER THE CURVE 6 ON DAY 1 EVERY 3 WEEKS FOR FOUR CYCLES
     Route: 065
  2. BEVACIZUMAB [Suspect]
     Active Substance: BEVACIZUMAB
     Indication: NON-SMALL CELL LUNG CANCER STAGE IV
     Dosage: 15 MG/KG ON DAY 1 EVERY 3 WEEKS FOR FOUR CYCLES
     Route: 065
  3. PACLITAXEL. [Suspect]
     Active Substance: PACLITAXEL
     Indication: NON-SMALL CELL LUNG CANCER STAGE IV
     Dosage: 200 MG/M2 ON DAY 1 EVERY 3 WEEKS FOR FOUR CYCLES
     Route: 065
  4. NITROGLYCERIN. [Suspect]
     Active Substance: NITROGLYCERIN
     Indication: NON-SMALL CELL LUNG CANCER STAGE IV
     Dosage: 15MG/24 HOUR FOR 5 DAYS (2 DAYS BEFORE UNTIL 2 DAYS AFTER ADMINISTRATION OF EVERY CYCLE)
     Route: 062

REACTIONS (1)
  - Pulmonary embolism [Fatal]
